FAERS Safety Report 8138306-5 (Version None)
Quarter: 2012Q1

REPORT INFORMATION
  Report Type: 
  Country: None (occurrence: None)
  Receive Date: 20120213
  Receipt Date: 20120131
  Transmission Date: 20120608
  Serious: Yes (Hospitalization)
  Sender: FDA-Public Use
  Company Number: 2012SP006167

PATIENT
  Age: 17 Year
  Sex: Male

DRUGS (6)
  1. LORAZEPAM [Concomitant]
  2. ASENAPINE (ASENAPINE) [Suspect]
     Indication: SCHIZOPHRENIA
     Dosage: 2.5 MG;BID;SL
     Route: 060
     Dates: start: 20120123, end: 20120125
  3. CLOZAPINE [Concomitant]
  4. SULPIRID [Concomitant]
  5. IBUPROFEN [Concomitant]
  6. LORAZEPAM [Concomitant]

REACTIONS (7)
  - HALLUCINATION, AUDITORY [None]
  - INSOMNIA [None]
  - AKATHISIA [None]
  - COGNITIVE DISORDER [None]
  - CONDITION AGGRAVATED [None]
  - SCHIZOPHRENIA [None]
  - DELUSION [None]
